FAERS Safety Report 7867273-4 (Version None)
Quarter: 2011Q4

REPORT INFORMATION
  Report Type: 
  Country: None (occurrence: None)
  Receive Date: 20111026
  Receipt Date: 20111012
  Transmission Date: 20120403
  Serious: Yes (Hospitalization)
  Sender: FDA-Public Use
  Company Number: 2011DE0299

PATIENT
  Age: 20 Year
  Sex: Male

DRUGS (2)
  1. KINERET [Suspect]
     Indication: STILL'S DISEASE ADULT ONSET
     Dosage: 100 MG PER DAY
     Dates: start: 20110713, end: 20110901
  2. CORTICOSTEROIDES [Concomitant]

REACTIONS (3)
  - PYREXIA [None]
  - JAUNDICE [None]
  - ACUTE HEPATIC FAILURE [None]
